FAERS Safety Report 7298114-4 (Version None)
Quarter: 2011Q1

REPORT INFORMATION
  Report Type: 
  Country: None (occurrence: None)
  Receive Date: 20110217
  Receipt Date: 20110209
  Transmission Date: 20110831
  Serious: Yes (Hospitalization)
  Sender: FDA-Public Use
  Company Number: US-JNJFOC-20110203646

PATIENT
  Sex: Female
  Weight: 40.37 kg

DRUGS (7)
  1. VITAMIN D [Concomitant]
  2. REMICADE [Suspect]
     Indication: RHEUMATOID ARTHRITIS
     Route: 042
  3. VITAMIN TAB [Concomitant]
  4. DICLOFENAC SODIUM [Concomitant]
  5. OXYCODONE [Concomitant]
  6. LEVOTHYROXINE SODIUM [Concomitant]
  7. PRILOSEC [Concomitant]

REACTIONS (4)
  - PNEUMONIA [None]
  - PERICARDIAL EFFUSION [None]
  - CHRONIC OBSTRUCTIVE PULMONARY DISEASE [None]
  - PLEURAL EFFUSION [None]
